FAERS Safety Report 7409315-6 (Version None)
Quarter: 2011Q2

REPORT INFORMATION
  Report Type: 
  Country: None (occurrence: None)
  Receive Date: 20110412
  Receipt Date: 20110407
  Transmission Date: 20111010
  Serious: Yes (Other)
  Sender: FDA-Public Use
  Company Number: D0070038A

PATIENT
  Sex: Male

DRUGS (3)
  1. DUODART [Suspect]
     Route: 048
     Dates: start: 20101206, end: 20110110
  2. UNKNOWN DRUG [Concomitant]
     Route: 065
  3. THYROXIN [Concomitant]
     Route: 065

REACTIONS (6)
  - DIZZINESS [None]
  - HALLUCINATION [None]
  - HEADACHE [None]
  - VISUAL IMPAIRMENT [None]
  - INFLUENZA [None]
  - CARDIOVASCULAR DISORDER [None]
